FAERS Safety Report 8509993-4 (Version None)
Quarter: 2012Q3

REPORT INFORMATION
  Report Type: 
  Country: None (occurrence: None)
  Receive Date: 20120713
  Receipt Date: 20120709
  Transmission Date: 20120928
  Serious: Yes (Life-Threatening, Disabling, Other)
  Sender: FDA-Public Use
  Company Number: US-CELGENEUS-163-21880-12043091

PATIENT
  Sex: Male
  Weight: 77.634 kg

DRUGS (15)
  1. SIMVASTATIN [Concomitant]
     Dosage: 40 MILLIGRAM
     Route: 048
  2. REVLIMID [Suspect]
     Indication: MULTIPLE MYELOMA
     Dosage: 5 MILLIGRAM
     Route: 048
     Dates: start: 20120101, end: 20120425
  3. REVLIMID [Suspect]
     Dosage: 10 MILLIGRAM
     Route: 048
     Dates: start: 20120425
  4. DEXAMETHASONE [Suspect]
     Dosage: 40 MILLIGRAM
     Route: 048
     Dates: start: 20120109
  5. WARFARIN SODIUM [Concomitant]
     Dosage: 4.2857 MILLIGRAM
     Route: 048
  6. CARVEDILOL [Concomitant]
     Dosage: 6.25 MILLIGRAM
     Route: 048
  7. TERAZOSIN HCL [Concomitant]
     Dosage: 1 MILLIGRAM
     Route: 048
  8. PANTOPRAZOLE [Concomitant]
     Indication: GASTROINTESTINAL DISORDER
     Dosage: 40 MILLIGRAM
     Route: 048
  9. FUROSEMIDE [Concomitant]
     Dosage: 20 MILLIGRAM
     Route: 048
     Dates: start: 20111123
  10. DECADRON [Concomitant]
     Dosage: 4 MILLIGRAM
     Route: 048
  11. CYANOCOBALAMIN [Concomitant]
     Dosage: 100 MICROGRAM
     Route: 048
  12. MULTIPLE VITAMINS-MINERALS [Concomitant]
     Route: 048
  13. HYDROCODONE BITARTRATE + ACETAMINOPHEN [Concomitant]
     Dosage: 5-500MG
     Route: 048
     Dates: start: 20100702
  14. WARFARIN SODIUM [Concomitant]
     Dosage: 5 MILLIGRAM
     Route: 048
  15. FOLIC ACID [Concomitant]
     Dosage: 1 MILLIGRAM
     Route: 048
     Dates: start: 20110504

REACTIONS (2)
  - DIABETES MELLITUS [None]
  - MULTIPLE MYELOMA [None]
